FAERS Safety Report 19349034 (Version 1)
Quarter: 2021Q2

REPORT INFORMATION
  Report Type: Spontaneous
  Country: US (occurrence: US)
  Receive Date: 20210530
  Receipt Date: 20210530
  Transmission Date: 20210717
  Serious: Yes (Hospitalization)
  Sender: FDA-Public Use
  Company Number: None

PATIENT
  Age: 34 Year
  Sex: Female
  Weight: 148.5 kg

DRUGS (10)
  1. ZOLFRAN [Concomitant]
  2. DELTA?8 50 MG CBD GUMMY [Suspect]
     Active Substance: .DELTA.8-TETRAHYDROCANNABINOL\HERBALS
     Indication: MIGRAINE
     Dosage: ?          QUANTITY:1 GUMMY;?
     Route: 048
     Dates: start: 20210528, end: 20210528
  3. VITAMIN D3 [Concomitant]
     Active Substance: CHOLECALCIFEROL
  4. VITAMIN B12 [Concomitant]
     Active Substance: CYANOCOBALAMIN
  5. LEXAPRO [Concomitant]
     Active Substance: ESCITALOPRAM OXALATE
  6. DELTA?8 50 MG CBD GUMMY [Suspect]
     Active Substance: .DELTA.8-TETRAHYDROCANNABINOL\HERBALS
     Indication: FIBROMYALGIA
     Dosage: ?          QUANTITY:1 GUMMY;?
     Route: 048
     Dates: start: 20210528, end: 20210528
  7. SPIRONOLACTONE. [Concomitant]
     Active Substance: SPIRONOLACTONE
  8. NEXIUM [Concomitant]
     Active Substance: ESOMEPRAZOLE MAGNESIUM
  9. LAMOTRIGINE. [Concomitant]
     Active Substance: LAMOTRIGINE
  10. C?PAP MACHINE [Concomitant]
     Active Substance: DEVICE

REACTIONS (9)
  - Heart rate increased [None]
  - Feeling abnormal [None]
  - Blood pressure increased [None]
  - Seizure [None]
  - Vertigo [None]
  - Myalgia [None]
  - Pain [None]
  - Fatigue [None]
  - Mental impairment [None]

NARRATIVE: CASE EVENT DATE: 20210528
